FAERS Safety Report 25544194 (Version 1)
Quarter: 2025Q3

REPORT INFORMATION
  Report Type: Spontaneous
  Country: EU (occurrence: EU)
  Receive Date: 20250711
  Receipt Date: 20250711
  Transmission Date: 20251020
  Serious: Yes (Hospitalization, Other)
  Sender: PFIZER
  Company Number: EU-PFIZER INC-PV202500082075

PATIENT
  Age: 53 Year
  Sex: Female

DRUGS (4)
  1. TUKYSA [Suspect]
     Active Substance: TUCATINIB
     Indication: Breast cancer female
     Dates: start: 202310
  2. TRASTUZUMAB [Concomitant]
     Active Substance: TRASTUZUMAB
     Indication: Breast cancer female
     Dates: start: 202212
  3. TRASTUZUMAB [Concomitant]
     Active Substance: TRASTUZUMAB
     Dates: start: 202310
  4. CAPECITABINE [Concomitant]
     Active Substance: CAPECITABINE
     Indication: Breast cancer female
     Dates: start: 202310

REACTIONS (3)
  - Metastases to central nervous system [Recovering/Resolving]
  - Malignant neoplasm progression [Recovering/Resolving]
  - Ejection fraction decreased [Recovering/Resolving]

NARRATIVE: CASE EVENT DATE: 20240501
